FAERS Safety Report 14997011 (Version 1)
Quarter: 2018Q2

REPORT INFORMATION
  Report Type: Spontaneous
  Country: DE (occurrence: DE)
  Receive Date: 20180611
  Receipt Date: 20180611
  Transmission Date: 20180711
  Serious: Yes (Hospitalization)
  Sender: FDA-Public Use
  Company Number: DE-TEVA-2018-DE-904646

PATIENT
  Age: 71 Year
  Sex: Male

DRUGS (13)
  1. CLOPIDOGREL [Suspect]
     Active Substance: CLOPIDOGREL BISULFATE
     Dosage: 75 MILLIGRAM DAILY;
     Route: 065
  2. FUROBETA 500 [Concomitant]
     Dosage: 0.25-0.25-0-0 AN HD-FREIEN TAGEN
     Route: 065
  3. SPIRIVA RESPIMAT [Concomitant]
     Active Substance: TIOTROPIUM BROMIDE
     Dosage: 2.5 MILLIGRAM DAILY;
  4. HD-VITAMINE [Concomitant]
     Dosage: DIALYSIS-FREE DAYS
     Route: 065
  5. RENVELA [Concomitant]
     Active Substance: SEVELAMER CARBONATE
     Dosage: 1-2-3-0
     Route: 065
  6. METOPROLOL SUCCINAT [Concomitant]
     Dosage: 47.5 MG, 1-0-1-0 DIALYSETAGE:0-0-1-0
     Route: 065
  7. SIMVASTATIN. [Concomitant]
     Active Substance: SIMVASTATIN
     Dosage: 20 MILLIGRAM DAILY;
     Route: 065
  8. FORADIL [Concomitant]
     Active Substance: FORMOTEROL FUMARATE
     Dosage: 24 MICROGRAM DAILY;
     Route: 065
  9. PHENPRO.-RATIOPHARM 3MG [Suspect]
     Active Substance: PHENPROCOUMON
     Route: 065
  10. DIGITOXIN [Concomitant]
     Active Substance: DIGITOXIN
     Dosage: .07 MILLIGRAM DAILY;
     Route: 065
  11. BICANORM [Concomitant]
     Active Substance: SODIUM BICARBONATE
     Route: 065
  12. PHOSPHONORM [Concomitant]
     Active Substance: ALUMINUM CHLOROHYDRATE
     Route: 065
  13. ALLOPURINOL. [Concomitant]
     Active Substance: ALLOPURINOL
     Dosage: , 0-0.5-0-0
     Route: 065

REACTIONS (3)
  - Spontaneous haemorrhage [Unknown]
  - Syncope [Unknown]
  - Post procedural haemorrhage [Unknown]
